FAERS Safety Report 5333544-9 (Version None)
Quarter: 2007Q2

REPORT INFORMATION
  Report Type: 
  Country: None (occurrence: None)
  Receive Date: 20070524
  Receipt Date: 20070515
  Transmission Date: 20071010
  Serious: Yes (Other)
  Sender: FDA-Public Use
  Company Number: US-JNJFOC-20070206157

PATIENT
  Sex: Female
  Weight: 126.51 kg

DRUGS (9)
  1. DURAGESIC-100 [Suspect]
     Indication: PAIN
     Route: 062
  2. DURAGESIC-100 [Suspect]
     Indication: FIBROMYALGIA
     Route: 062
  3. LYRICA [Suspect]
     Indication: PAIN
     Route: 048
  4. UNKNOWN MUSCLE RELAXANT [Suspect]
     Indication: MUSCLE SPASMS
     Route: 048
  5. ZYRTEC [Concomitant]
     Indication: MULTIPLE ALLERGIES
     Route: 048
  6. B12 SHOT [Concomitant]
     Indication: WEIGHT DECREASED
     Route: 058
  7. SINGULAIR [Concomitant]
     Indication: ASTHMA
     Route: 048
  8. GLUCOPHAGE [Concomitant]
     Indication: BLOOD GLUCOSE ABNORMAL
     Route: 048
  9. ULTRACET [Concomitant]
     Indication: PAIN
     Route: 048

REACTIONS (9)
  - HALLUCINATION, VISUAL [None]
  - HYPERSOMNIA [None]
  - INADEQUATE ANALGESIA [None]
  - INAPPROPRIATE SCHEDULE OF DRUG ADMINISTRATION [None]
  - PHARMACEUTICAL PRODUCT COMPLAINT [None]
  - PNEUMONIA [None]
  - PSYCHOTIC DISORDER [None]
  - SINUSITIS [None]
  - TREMOR [None]
